FAERS Safety Report 11234919 (Version 2)
Quarter: 2015Q3

REPORT INFORMATION
  Report Type: Report from Study
  Country: US (occurrence: US)
  Receive Date: 20150702
  Receipt Date: 20150707
  Transmission Date: 20151125
  Serious: Yes (Hospitalization, Disabling)
  Sender: FDA-Public Use
  Company Number: US-SA-2015SA092749

PATIENT
  Age: 54 Year
  Sex: Female

DRUGS (2)
  1. LANTUS [Suspect]
     Active Substance: INSULIN GLARGINE
     Indication: DIABETES MELLITUS
     Dosage: DOSE:35 UNIT(S)
     Route: 058
     Dates: start: 19850101
  2. NOVOLOG [Concomitant]
     Active Substance: INSULIN ASPART

REACTIONS (8)
  - Pain of skin [Unknown]
  - Herpes zoster [Unknown]
  - Expired product administered [Unknown]
  - Surgery [Unknown]
  - Incorrect product storage [Unknown]
  - Atrial fibrillation [Recovering/Resolving]
  - Back pain [Unknown]
  - Tachycardia [Unknown]

NARRATIVE: CASE EVENT DATE: 2009
